FAERS Safety Report 16324787 (Version 2)
Quarter: 2019Q2

REPORT INFORMATION
  Report Type: Report from Study
  Country: BR (occurrence: BR)
  Receive Date: 20190517
  Receipt Date: 20190517
  Transmission Date: 20190711
  Serious: Yes (Hospitalization, Other)
  Sender: FDA-Public Use
  Company Number: PHHY2018BR061475

PATIENT
  Sex: Male
  Weight: 88 kg

DRUGS (7)
  1. LORATADINE. [Concomitant]
     Active Substance: LORATADINE
     Indication: PRODUCT USED FOR UNKNOWN INDICATION
     Route: 065
  2. XOLAIR [Suspect]
     Active Substance: OMALIZUMAB
     Dosage: 300MG, EVERY 4 WEEKS
     Route: 058
     Dates: end: 201802
  3. XOLAIR [Suspect]
     Active Substance: OMALIZUMAB
     Dosage: UNK
     Route: 058
     Dates: start: 20171224
  4. XOLAIR [Suspect]
     Active Substance: OMALIZUMAB
     Dosage: UNK
     Route: 058
     Dates: start: 201801
  5. PREDSIN [Concomitant]
     Active Substance: CHLORAMPHENICOL\PREDNISOLONE
     Indication: PRODUCT USED FOR UNKNOWN INDICATION
     Route: 065
  6. CICLOSPORIN [Suspect]
     Active Substance: CYCLOSPORINE
     Indication: PRODUCT USED FOR UNKNOWN INDICATION
     Route: 065
  7. XOLAIR [Suspect]
     Active Substance: OMALIZUMAB
     Indication: URTICARIA
     Dosage: 300 MG, UNK
     Route: 058
     Dates: start: 20171129

REACTIONS (17)
  - Drug ineffective [Not Recovered/Not Resolved]
  - Angioedema [Unknown]
  - Blood pressure abnormal [Unknown]
  - Urticarial vasculitis [Unknown]
  - Mass [Unknown]
  - Pain in extremity [Not Recovered/Not Resolved]
  - Pyrexia [Unknown]
  - Arthralgia [Unknown]
  - Urticaria [Not Recovered/Not Resolved]
  - Erythema [Unknown]
  - Dysstasia [Not Recovered/Not Resolved]
  - Pruritus [Recovering/Resolving]
  - Laryngeal oedema [Unknown]
  - Blister [Not Recovered/Not Resolved]
  - Peripheral swelling [Unknown]
  - Oropharyngeal plaque [Unknown]
  - Perfume sensitivity [Unknown]
